FAERS Safety Report 23891667 (Version 1)
Quarter: 2024Q2

REPORT INFORMATION
  Report Type: Report from Study
  Country: US (occurrence: US)
  Receive Date: 20240524
  Receipt Date: 20240524
  Transmission Date: 20240716
  Serious: Yes (Other)
  Sender: FDA-Public Use
  Company Number: US-ABBVIE-5771278

PATIENT
  Age: 71 Year
  Sex: Female

DRUGS (1)
  1. HUMIRA [Suspect]
     Active Substance: ADALIMUMAB
     Indication: Breast cancer
     Dosage: FORM STRENGTH: 40 MILLIGRAM?CITRATE FREE
     Route: 058

REACTIONS (1)
  - Breast cancer female [Recovering/Resolving]

NARRATIVE: CASE EVENT DATE: 20220101
